FAERS Safety Report 5521137-X (Version None)
Quarter: 2007Q4

REPORT INFORMATION
  Report Type: 
  Country: None (occurrence: None)
  Receive Date: 20071119
  Receipt Date: 20070824
  Transmission Date: 20080405
  Serious: Yes (Death)
  Sender: FDA-Public Use
  Company Number: US-ASTRAZENECA-2007UW09510

PATIENT
  Age: 18726 Day
  Sex: Male

DRUGS (3)
  1. SEROQUEL [Suspect]
     Indication: BIPOLAR DISORDER
     Dosage: 750 MG - 800 MG
     Route: 048
     Dates: start: 19970501, end: 20040128
  2. SEROQUEL [Suspect]
     Route: 048
     Dates: start: 20040129, end: 20041125
  3. RISPERDAL [Concomitant]
     Route: 048
     Dates: start: 20040119, end: 20041111

REACTIONS (2)
  - DEATH [None]
  - TYPE 2 DIABETES MELLITUS [None]
